FAERS Safety Report 7630659-7 (Version None)
Quarter: 2011Q3

REPORT INFORMATION
  Report Type: 
  Country: None (occurrence: None)
  Receive Date: 20110722
  Receipt Date: 20110713
  Transmission Date: 20111222
  Serious: Yes (Disabling, Other)
  Sender: FDA-Public Use
  Company Number: AU-ASTRAZENECA-2011SE38058

PATIENT
  Age: 49 Year
  Sex: Female

DRUGS (2)
  1. TAMOXIFEN CITRATE [Concomitant]
  2. ARIMIDEX [Suspect]
     Route: 048
     Dates: start: 20110301

REACTIONS (3)
  - HOT FLUSH [None]
  - OCULAR VASCULAR DISORDER [None]
  - ARTHRALGIA [None]
